FAERS Safety Report 20466376 (Version 1)
Quarter: 2022Q1

REPORT INFORMATION
  Report Type: Spontaneous
  Country: US (occurrence: US)
  Receive Date: 20220213
  Receipt Date: 20220213
  Transmission Date: 20220423
  Serious: Yes (Death, Hospitalization)
  Sender: FDA-Public Use
  Company Number: US-JNJFOC-20220215624

PATIENT
  Age: 56 Year
  Sex: Male

DRUGS (12)
  1. DURAGESIC [Suspect]
     Active Substance: FENTANYL
     Indication: Product used for unknown indication
     Route: 048
  2. DURAGESIC [Suspect]
     Active Substance: FENTANYL
     Route: 050
  3. DURAGESIC [Suspect]
     Active Substance: FENTANYL
     Route: 065
  4. ACETAMINOPHEN\HYDROCODONE [Suspect]
     Active Substance: ACETAMINOPHEN\HYDROCODONE
     Indication: Product used for unknown indication
     Route: 048
  5. ACETAMINOPHEN\HYDROCODONE [Suspect]
     Active Substance: ACETAMINOPHEN\HYDROCODONE
     Route: 065
  6. ACETAMINOPHEN\HYDROCODONE [Suspect]
     Active Substance: ACETAMINOPHEN\HYDROCODONE
     Route: 065
  7. CANNABIS SATIVA SUBSP. INDICA TOP [Suspect]
     Active Substance: CANNABIS SATIVA SUBSP. INDICA TOP
     Indication: Product used for unknown indication
     Route: 048
  8. CANNABIS SATIVA SUBSP. INDICA TOP [Suspect]
     Active Substance: CANNABIS SATIVA SUBSP. INDICA TOP
     Route: 050
  9. CANNABIS SATIVA SUBSP. INDICA TOP [Suspect]
     Active Substance: CANNABIS SATIVA SUBSP. INDICA TOP
     Route: 065
  10. AMPHETAMINE [Suspect]
     Active Substance: AMPHETAMINE
     Indication: Product used for unknown indication
     Route: 048
  11. AMPHETAMINE [Suspect]
     Active Substance: AMPHETAMINE
     Route: 050
  12. AMPHETAMINE [Suspect]
     Active Substance: AMPHETAMINE
     Route: 065

REACTIONS (2)
  - Completed suicide [Fatal]
  - Toxicity to various agents [Fatal]
